FAERS Safety Report 20515836 (Version 2)
Quarter: 2022Q4

REPORT INFORMATION
  Report Type: Report from Study
  Country: BE (occurrence: BE)
  Receive Date: 20220224
  Receipt Date: 20221123
  Transmission Date: 20230113
  Serious: Yes (Death, Hospitalization, Other)
  Sender: FDA-Public Use
  Company Number: BE-GILEAD-2022-0570965

PATIENT
  Age: 18 Year
  Sex: Male

DRUGS (2)
  1. COBICISTAT\ELVITEGRAVIR\EMTRICITABINE\TENOFOVIR [Suspect]
     Active Substance: COBICISTAT\ELVITEGRAVIR\EMTRICITABINE\TENOFOVIR
     Indication: Product used for unknown indication
     Dosage: UNK
     Route: 048
  2. COBICISTAT\ELVITEGRAVIR\EMTRICITABINE\TENOFOVIR [Suspect]
     Active Substance: COBICISTAT\ELVITEGRAVIR\EMTRICITABINE\TENOFOVIR
     Dosage: 30 DOSAGE FORM, ONCE
     Route: 048

REACTIONS (8)
  - Intentional overdose [Fatal]
  - Nodal rhythm [Fatal]
  - Loss of consciousness [Unknown]
  - Hypotensive crisis [Unknown]
  - Metabolic acidosis [Unknown]
  - Transaminases increased [Unknown]
  - Cardiogenic shock [Unknown]
  - Pulseless electrical activity [Unknown]
